FAERS Safety Report 19889426 (Version 1)
Quarter: 2021Q3

REPORT INFORMATION
  Report Type: Report from Study
  Country: TH (occurrence: TH)
  Receive Date: 20210927
  Receipt Date: 20210927
  Transmission Date: 20211014
  Serious: Yes (Death, Other)
  Sender: FDA-Public Use
  Company Number: TH-ASTRAZENECA-2021A692591

PATIENT
  Age: 20515 Day
  Sex: Male

DRUGS (1)
  1. TAGRISSO [Suspect]
     Active Substance: OSIMERTINIB
     Indication: LUNG NEOPLASM MALIGNANT
     Route: 048
     Dates: start: 20210311, end: 20210811

REACTIONS (4)
  - Liver function test increased [Fatal]
  - Neoplasm progression [Fatal]
  - Jaundice [Fatal]
  - Nausea [Fatal]

NARRATIVE: CASE EVENT DATE: 202106
